FAERS Safety Report 7374305-9 (Version None)
Quarter: 2011Q1

REPORT INFORMATION
  Report Type: 
  Country: None (occurrence: None)
  Receive Date: 20110325
  Receipt Date: 20110121
  Transmission Date: 20110831
  Serious: No
  Sender: FDA-Public Use
  Company Number: US-BAYER-2011-008464

PATIENT
  Sex: Female

DRUGS (1)
  1. BEYAZ [Suspect]

REACTIONS (2)
  - ABDOMINAL PAIN UPPER [None]
  - VAGINAL HAEMORRHAGE [None]
